FAERS Safety Report 15721140 (Version 1)
Quarter: 2018Q4

REPORT INFORMATION
  Report Type: Spontaneous
  Country: US (occurrence: US)
  Receive Date: 20181214
  Receipt Date: 20181214
  Transmission Date: 20190205
  Serious: No
  Sender: FDA-Public Use
  Company Number: US-DRREDDYS-USA/USA/18/0105804

PATIENT
  Sex: Male
  Weight: 86.3 kg

DRUGS (1)
  1. CIPROFLOXACIN. [Suspect]
     Active Substance: CIPROFLOXACIN
     Indication: EAR PAIN
     Route: 048

REACTIONS (3)
  - Neck pain [Unknown]
  - Tinnitus [Unknown]
  - Somnolence [Unknown]
